FAERS Safety Report 19025508 (Version 1)
Quarter: 2021Q1

REPORT INFORMATION
  Report Type: Report from Study
  Country: CA (occurrence: CA)
  Receive Date: 20210318
  Receipt Date: 20210318
  Transmission Date: 20210420
  Serious: Yes (Hospitalization, Other)
  Sender: FDA-Public Use
  Company Number: CA-TAKEDA-CA201406139

PATIENT
  Age: 15 Year
  Sex: Male
  Weight: 39.2 kg

DRUGS (9)
  1. PEDIAPRED [Concomitant]
     Active Substance: PREDNISOLONE SODIUM PHOSPHATE
     Indication: STEROID THERAPY
     Dosage: 0.7 MG, 2X/DAY:BID
     Route: 065
     Dates: start: 20140101
  2. IDURSULFASE [Suspect]
     Active Substance: IDURSULFASE
     Dosage: 0.5 MG/KG, 1X/WEEK
     Route: 041
     Dates: start: 20080403
  3. IDURSULFASE [Suspect]
     Active Substance: IDURSULFASE
     Dosage: 0.54 MG/KG, OTHER (2 VIALS X 3 WEEKS, THEN 1 VIAL)
     Route: 041
     Dates: start: 20101007
  4. IDURSULFASE [Suspect]
     Active Substance: IDURSULFASE
     Indication: MUCOPOLYSACCHARIDOSIS II
     Dosage: 0.54 MG/KG, 1X/WEEK
     Route: 041
     Dates: start: 20110425
  5. HUMATROPE [Concomitant]
     Active Substance: SOMATROPIN
     Indication: GROWTH HORMONE DEFICIENCY
     Dosage: 1.2 MG, OTHER (6 DAYS PER WEEK)
     Route: 065
     Dates: start: 201311
  6. ENALAPRIL [Concomitant]
     Active Substance: ENALAPRIL
     Indication: CARDIAC DISORDER
     Dosage: 5 MG, 1X/DAY:QD
     Route: 048
     Dates: start: 20120820
  7. KEPPRA [Concomitant]
     Active Substance: LEVETIRACETAM
     Indication: SEIZURE
     Dosage: 250 MG, 2X/DAY:BID
     Route: 048
     Dates: start: 20110712
  8. SYNTHROID [Concomitant]
     Active Substance: LEVOTHYROXINE SODIUM
     Indication: GROWTH HORMONE DEFICIENCY
     Dosage: 100 ?G, 1X/DAY:QD
     Route: 048
     Dates: start: 201311
  9. VITAMIN D                          /00107901/ [Concomitant]
     Active Substance: ERGOCALCIFEROL
     Indication: PROPHYLAXIS
     Dosage: UNK (1000 UNITS), 1X/DAY:QD
     Route: 048
     Dates: start: 20140401

REACTIONS (4)
  - Device related infection [Recovering/Resolving]
  - Bacteraemia [Recovering/Resolving]
  - Adrenal insufficiency [Recovered/Resolved]
  - Sepsis [Recovered/Resolved]

NARRATIVE: CASE EVENT DATE: 20140912
